FAERS Safety Report 6887286-9 (Version None)
Quarter: 2010Q3

REPORT INFORMATION
  Report Type: 
  Country: None (occurrence: None)
  Receive Date: 20100730
  Receipt Date: 20100112
  Transmission Date: 20110219
  Serious: No
  Sender: FDA-Public Use
  Company Number: A0665777A

PATIENT
  Sex: Female

DRUGS (6)
  1. IMITREX [Suspect]
     Indication: PRODUCT USED FOR UNKNOWN INDICATION
     Dosage: 1TAB AS REQUIRED
     Route: 048
     Dates: start: 19950101
  2. AMERGE [Suspect]
     Indication: MIGRAINE
     Dosage: 2.5MG SINGLE DOSE
     Route: 048
     Dates: start: 20090101
  3. IMITREX [Suspect]
     Indication: MIGRAINE
     Dosage: 100MG SINGLE DOSE
     Route: 058
     Dates: start: 20090101
  4. BLOOD PRESSURE MEDICATION [Concomitant]
  5. MAGNESIUM [Concomitant]
  6. VITAMIN B-12 [Concomitant]

REACTIONS (2)
  - DRUG INEFFECTIVE [None]
  - MIGRAINE [None]
